FAERS Safety Report 8280825-5 (Version None)
Quarter: 2012Q2

REPORT INFORMATION
  Report Type: 
  Country: None (occurrence: None)
  Receive Date: 20120412
  Receipt Date: 20120410
  Transmission Date: 20120825
  Serious: Yes (Hospitalization)
  Sender: FDA-Public Use
  Company Number: JP-ABBOTT-11P-087-0871322-00

PATIENT
  Sex: Female
  Weight: 44.2 kg

DRUGS (13)
  1. HUMIRA [Suspect]
     Route: 058
     Dates: start: 20111004, end: 20111004
  2. AZATHIOPRINE [Concomitant]
     Indication: CROHN'S DISEASE
     Route: 048
     Dates: start: 20090223
  3. SODIUM FERROUS CITRATE [Concomitant]
     Indication: IRON DEFICIENCY ANAEMIA
     Route: 048
     Dates: start: 20061201
  4. HUMIRA [Suspect]
     Indication: CROHN'S DISEASE
     Route: 058
     Dates: start: 20111003, end: 20111003
  5. MESALAMINE [Concomitant]
     Indication: CROHN'S DISEASE
     Route: 048
     Dates: start: 20061201
  6. MAGNESIUM OXIDE [Concomitant]
     Indication: CONSTIPATION
     Route: 048
     Dates: start: 20061201
  7. PREDNISOLONE [Concomitant]
     Indication: CROHN'S DISEASE
     Route: 048
     Dates: start: 20110516
  8. LORNOXICAM [Concomitant]
     Indication: ABDOMINAL PAIN
     Route: 048
     Dates: start: 20081027
  9. TPN [Concomitant]
     Indication: CROHN'S DISEASE
     Route: 048
     Dates: start: 20071001
  10. SODIUM RISEDRONATE HYDRATE [Concomitant]
     Indication: OSTEOPOROSIS
     Route: 048
     Dates: start: 20061201
  11. CIPROFLOXACIN [Concomitant]
     Indication: URINARY TRACT INFECTION
     Route: 048
     Dates: start: 20110725
  12. HERBAL MEDICINE (DAIKENCHUTO) [Concomitant]
     Indication: CROHN'S DISEASE
     Route: 048
     Dates: start: 20101215
  13. RABEPRAZOLE SODIUM [Concomitant]
     Indication: GASTROINTESTINAL DISORDER
     Route: 048
     Dates: start: 20071001

REACTIONS (16)
  - INFECTION [None]
  - PARALYSIS [None]
  - TINNITUS [None]
  - DIARRHOEA [None]
  - SUBILEUS [None]
  - ABDOMINAL ADHESIONS [None]
  - ABDOMINAL PAIN [None]
  - SENSORY DISTURBANCE [None]
  - BRAIN HYPOXIA [None]
  - PYREXIA [None]
  - CONDITION AGGRAVATED [None]
  - NERVOUS SYSTEM DISORDER [None]
  - HYPOAESTHESIA [None]
  - GENITAL HAEMORRHAGE [None]
  - GASTROINTESTINAL STENOSIS [None]
  - HYPERSENSITIVITY [None]
